FAERS Safety Report 14377647 (Version 1)
Quarter: 2018Q1

REPORT INFORMATION
  Report Type: Spontaneous
  Country: US (occurrence: US)
  Receive Date: 20180111
  Receipt Date: 20180111
  Transmission Date: 20180509
  Serious: No
  Sender: FDA-Public Use
  Company Number: US-TEVA-2018-US-844094

PATIENT
  Sex: Female

DRUGS (4)
  1. DECADRON [Suspect]
     Active Substance: DEXAMETHASONE
     Indication: LOCAL ANAESTHESIA
     Route: 065
  2. CLONIDINE. [Suspect]
     Active Substance: CLONIDINE
     Indication: LOCAL ANAESTHESIA
     Dosage: 1.67 MCG/CC, BILATERALLY
     Route: 065
  3. EPINEPHRINE. [Suspect]
     Active Substance: EPINEPHRINE
     Indication: LOCAL ANAESTHESIA
     Dosage: EPINEPHRINE 1:300,000
     Route: 065
  4. ROPIVICAINE [Suspect]
     Active Substance: ROPIVACAINE
     Indication: LOCAL ANAESTHESIA
     Dosage: 30CC OF 0.25PERCENT
     Route: 065

REACTIONS (1)
  - Muscular weakness [Recovered/Resolved]
